FAERS Safety Report 12177408 (Version 1)
Quarter: 2016Q1

REPORT INFORMATION
  Report Type: Spontaneous
  Country: US (occurrence: US)
  Receive Date: 20160314
  Receipt Date: 20160314
  Transmission Date: 20160526
  Serious: Yes (Other)
  Sender: FDA-Public Use
  Company Number: US-JNJFOC-20160312853

PATIENT
  Sex: Male

DRUGS (3)
  1. RISPERDAL [Suspect]
     Active Substance: RISPERIDONE
     Indication: SCHIZOPHRENIA
     Dosage: FATHER^S DOSING
     Route: 064
  2. RISPERDAL [Suspect]
     Active Substance: RISPERIDONE
     Indication: SCHIZOPHRENIA
     Dosage: FATHER^S DOSING
     Route: 064
     Dates: start: 2009, end: 2011
  3. INVEGA [Suspect]
     Active Substance: PALIPERIDONE
     Indication: SCHIZOPHRENIA
     Dosage: FATHER^S DOSING
     Route: 064
     Dates: start: 2011

REACTIONS (4)
  - Developmental delay [Unknown]
  - Muscle spasms [Not Recovered/Not Resolved]
  - Dystonia [Not Recovered/Not Resolved]
  - Foetal exposure during pregnancy [Unknown]
